FAERS Safety Report 7744045-2 (Version None)
Quarter: 2011Q3

REPORT INFORMATION
  Report Type: 
  Country: None (occurrence: None)
  Receive Date: 20110912
  Receipt Date: 20110902
  Transmission Date: 20111222
  Serious: Yes (Other)
  Sender: FDA-Public Use
  Company Number: AR-AMGEN-ARGCT2011045530

PATIENT

DRUGS (4)
  1. RANITIDINE [Concomitant]
  2. IBUPROFEN [Concomitant]
  3. DENOSUMAB [Suspect]
     Indication: METASTASES TO BONE
  4. AMLODIPINE [Concomitant]

REACTIONS (1)
  - OSTEONECROSIS [None]
